FAERS Safety Report 25476527 (Version 3)
Quarter: 2025Q4

REPORT INFORMATION
  Report Type: Report from Study
  Country: US (occurrence: US)
  Receive Date: 20250625
  Receipt Date: 20251224
  Transmission Date: 20260118
  Serious: No
  Sender: SANDOZ
  Company Number: US-SANDOZ-SDZ2025US042792

PATIENT
  Age: 13 Year
  Sex: Female

DRUGS (2)
  1. OMNITROPE [Suspect]
     Active Substance: SOMATROPIN
     Indication: Product used for unknown indication
     Dosage: 2 MG, QD
  2. OMNITROPE [Suspect]
     Active Substance: SOMATROPIN

REACTIONS (2)
  - Drug effect less than expected [Unknown]
  - Product storage error [Unknown]

NARRATIVE: CASE EVENT DATE: 20250617
